FAERS Safety Report 17072515 (Version 2)
Quarter: 2019Q4

REPORT INFORMATION
  Report Type: Report from Study
  Country: US (occurrence: US)
  Receive Date: 20191125
  Receipt Date: 20191129
  Transmission Date: 20200122
  Serious: Yes (Other)
  Sender: FDA-Public Use
  Company Number: US-PFIZER INC-2019408796

PATIENT
  Age: 50 Year
  Sex: Female

DRUGS (2)
  1. XELJANZ [Suspect]
     Active Substance: TOFACITINIB CITRATE
     Dosage: 5 MG, UNK
     Dates: start: 20190613, end: 20191122
  2. XELJANZ [Suspect]
     Active Substance: TOFACITINIB CITRATE
     Dosage: 5 MG, UNK
     Dates: start: 20180801

REACTIONS (15)
  - Facial pain [Unknown]
  - Urinary tract infection [Not Recovered/Not Resolved]
  - Sinusitis [Unknown]
  - Pain [Recovering/Resolving]
  - Rhinorrhoea [Unknown]
  - Headache [Unknown]
  - Ear pain [Unknown]
  - Sinus congestion [Unknown]
  - Myalgia [Unknown]
  - Pain in extremity [Unknown]
  - Feeling abnormal [Unknown]
  - Blood urine present [Unknown]
  - Fatigue [Unknown]
  - Bone pain [Unknown]
  - Blood pressure increased [Unknown]

NARRATIVE: CASE EVENT DATE: 2019
